FAERS Safety Report 8774416 (Version 1)
Quarter: 2012Q4

REPORT INFORMATION
  Report Type: 
  Country: US (occurrence: US)
  Receive Date: 20120907
  Receipt Date: 20120907
  Transmission Date: 20130627
  Serious: Yes (Hospitalization)
  Sender: FDA-Public Use
  Company Number: US-PFIZER INC-2012219663

PATIENT
  Age: 57 Year
  Sex: Female
  Weight: 120.18 kg

DRUGS (11)
  1. LIPITOR [Suspect]
     Indication: BLOOD CHOLESTEROL INCREASED
     Dosage: 80 mg, 1x/day
     Route: 048
  2. LIPITOR [Suspect]
     Dosage: 40 mg, 1x/day
     Route: 048
  3. ASPIRIN [Concomitant]
     Dosage: 325 mg, 1x/day
  4. CELEBREX [Concomitant]
     Dosage: 200 mg, 1x/day
  5. ZYRTEC [Concomitant]
     Dosage: UNK
  6. DEPO-ESTRADIOL [Concomitant]
     Dosage: 5 mg, monthly
  7. PLAVIX [Concomitant]
     Dosage: 75 mg, 1x/day
  8. LASIX [Concomitant]
     Dosage: 20 mg, 1x/day
  9. DIOVAN HCT [Concomitant]
     Dosage: UNK, 1x/day
  10. IMDUR [Concomitant]
     Dosage: 30 mg, 1x/day
  11. BYSTOLIC [Concomitant]
     Dosage: 10 mg, 1x/day

REACTIONS (1)
  - Coronary artery occlusion [Unknown]
